FAERS Safety Report 5567007-2 (Version None)
Quarter: 2007Q4

REPORT INFORMATION
  Report Type: 
  Country: None (occurrence: None)
  Receive Date: 20071219
  Receipt Date: 20071212
  Transmission Date: 20080405
  Serious: Yes (Other)
  Sender: FDA-Public Use
  Company Number: US-KINGPHARMUSA00001-K200701523

PATIENT

DRUGS (4)
  1. ALTACE [Suspect]
     Indication: HYPERTENSION
     Dates: start: 20070910, end: 20071007
  2. ESBERIVEN                          /00021901/ [Concomitant]
     Dosage: 2 DF, UNK
     Route: 048
  3. EVENING PRIMROSE OIL [Concomitant]
     Dosage: 1 DF, QD
     Route: 048
  4. GLYCINE MAX [Concomitant]
     Dosage: 2 DF, QD
     Route: 048

REACTIONS (5)
  - BLOOD PRESSURE INCREASED [None]
  - DISCOMFORT [None]
  - DIZZINESS POSTURAL [None]
  - DRUG INEFFECTIVE [None]
  - NAUSEA [None]
